FAERS Safety Report 25597678 (Version 1)
Quarter: 2025Q3

REPORT INFORMATION
  Report Type: Report from Study
  Country: US (occurrence: US)
  Receive Date: 20250723
  Receipt Date: 20250723
  Transmission Date: 20251021
  Serious: Yes (Other)
  Sender: ABBVIE
  Company Number: US-ABBVIE-6381928

PATIENT
  Age: 74 Year
  Sex: Female

DRUGS (1)
  1. RINVOQ [Suspect]
     Active Substance: UPADACITINIB
     Indication: Eczema
     Dosage: STRENGTH: 15MG
     Route: 048
     Dates: end: 202507

REACTIONS (6)
  - Medical device implantation [Unknown]
  - Pain [Recovered/Resolved]
  - Visual impairment [Recovered/Resolved]
  - Erythema [Unknown]
  - Bone pain [Recovered/Resolved]
  - Peripheral swelling [Unknown]

NARRATIVE: CASE EVENT DATE: 20250701
